FAERS Safety Report 7953420-2 (Version None)
Quarter: 2011Q4

REPORT INFORMATION
  Report Type: 
  Country: None (occurrence: None)
  Receive Date: 20111202
  Receipt Date: 20111121
  Transmission Date: 20120403
  Serious: Yes (Hospitalization, Other)
  Sender: FDA-Public Use
  Company Number: US-ELI_LILLY_AND_COMPANY-US201109005175

PATIENT
  Sex: Male

DRUGS (4)
  1. ZYPREXA [Suspect]
     Dosage: UNK
     Dates: start: 20110828
  2. RISPERDAL [Concomitant]
     Indication: MAJOR DEPRESSION
     Dosage: UNK
     Dates: start: 20110801, end: 20110822
  3. ZYPREXA [Suspect]
     Indication: MAJOR DEPRESSION
     Dosage: UNK
     Dates: start: 20110801, end: 20110801
  4. HALDOL [Concomitant]
     Indication: MAJOR DEPRESSION
     Dosage: UNK, QD
     Dates: start: 20110822, end: 20110828

REACTIONS (3)
  - DYSTONIA [None]
  - SUICIDE ATTEMPT [None]
  - MAJOR DEPRESSION [None]
